FAERS Safety Report 6141295-6 (Version None)
Quarter: 2009Q1

REPORT INFORMATION
  Report Type: 
  Country: None (occurrence: None)
  Receive Date: 20090331
  Receipt Date: 20090318
  Transmission Date: 20090719
  Serious: Yes (Hospitalization)
  Sender: FDA-Public Use
  Company Number: 1000005489

PATIENT
  Sex: Female

DRUGS (1)
  1. MILNACIPRAN (MILNACIPRAN HYDROCHLORIDE) (CAPSULES) [Suspect]
     Dosage: 100 MG
     Dates: start: 20090304

REACTIONS (2)
  - PURPURA [None]
  - STAPHYLOCOCCAL IDENTIFICATION TEST POSITIVE [None]
